FAERS Safety Report 9385913 (Version 2)
Quarter: 2013Q3

REPORT INFORMATION
  Report Type: Spontaneous
  Country: US (occurrence: US)
  Receive Date: 20130705
  Receipt Date: 20130924
  Transmission Date: 20140515
  Serious: Yes (Other)
  Sender: FDA-Public Use
  Company Number: US-ALLERGAN-1309466US

PATIENT
  Age: 67 Year
  Sex: Female

DRUGS (8)
  1. PRED FORTE [Suspect]
     Indication: GLAUCOMATOCYCLITIC CRISES
     Dosage: 2 GTT, BID TO QID
     Route: 047
     Dates: start: 2012
  2. PRED FORTE [Suspect]
     Dosage: 2 GTT, QD
     Route: 047
     Dates: start: 2012, end: 2012
  3. PRED FORTE [Suspect]
     Dosage: 2 GTT, BID
     Route: 047
     Dates: start: 2012, end: 2012
  4. PRED FORTE [Suspect]
     Dosage: 2 GTT, TID
     Route: 047
     Dates: start: 2012, end: 2012
  5. PRED FORTE [Suspect]
     Dosage: 2 GTT, QID
     Route: 047
     Dates: start: 2012, end: 2012
  6. PRED FORTE [Suspect]
     Dosage: 2 GTT, Q1HR
     Route: 047
     Dates: start: 2012, end: 2012
  7. ZIRGAN [Concomitant]
     Indication: HERPES OPHTHALMIC
     Dosage: UNK UNK, QD
     Route: 047
     Dates: start: 2012, end: 201304
  8. CYCLOGYL [Concomitant]
     Indication: EYE INFLAMMATION
     Dosage: UNK UNK, QD
     Route: 047
     Dates: start: 2012, end: 201304

REACTIONS (4)
  - Visual acuity reduced [Unknown]
  - Intraocular pressure increased [Recovered/Resolved]
  - Off label use [Unknown]
  - Inappropriate schedule of drug administration [Unknown]
